FAERS Safety Report 9455653 (Version 1)
Quarter: 2013Q3

REPORT INFORMATION
  Report Type: Spontaneous
  Country: US (occurrence: US)
  Receive Date: 20130813
  Receipt Date: 20130813
  Transmission Date: 20140515
  Serious: Yes (Hospitalization, Disabling)
  Sender: FDA-Public Use
  Company Number: US-BAYER-2013-096384

PATIENT
  Age: 67 Year
  Sex: Male
  Weight: 93 kg

DRUGS (19)
  1. BAYER ASPIRIN REGIMEN ADULT LOW STRENGTH [Suspect]
     Dosage: DAILY
     Route: 048
  2. HEPARIN [Concomitant]
  3. BALSALAZINE DISODIUM [Concomitant]
  4. PREDNISONE [Concomitant]
  5. GABAPENTIN [Concomitant]
  6. ATORVASTATIN [Concomitant]
  7. METOPROLOL [Concomitant]
  8. LISINOPRIL [Concomitant]
  9. SPIRIVA HANDIHALER [Concomitant]
  10. ALLEGRA [Concomitant]
  11. PROVENTIL HFA [Concomitant]
  12. CITALOPRAM HYDROBROMIDE [Concomitant]
  13. TRAZODONE HCL [Concomitant]
  14. PROVIGIL [Concomitant]
  15. TOPROL [Concomitant]
  16. LIPITOR [Concomitant]
  17. IMODIUM [Concomitant]
  18. CENTRUM [Concomitant]
     Dosage: DAILY
  19. CALCIUM WITH VITAMIN D [Concomitant]

REACTIONS (19)
  - Crohn^s disease [Recovered/Resolved]
  - Faecal incontinence [Recovered/Resolved]
  - Diarrhoea [Recovered/Resolved]
  - Anal haemorrhage [Recovered/Resolved]
  - Rectal haemorrhage [Recovered/Resolved]
  - Abdominal pain [Recovered/Resolved]
  - Flatulence [Recovered/Resolved]
  - Eructation [Recovered/Resolved]
  - Urethral stenosis [None]
  - Blood creatinine increased [Recovering/Resolving]
  - Pseudopolyposis [None]
  - Drug hypersensitivity [None]
  - Drug eruption [None]
  - Fatigue [None]
  - Headache [None]
  - Dyspnoea [None]
  - Dyspnoea exertional [None]
  - Sexual dysfunction [None]
  - Myalgia [None]
